FAERS Safety Report 5383373-5 (Version None)
Quarter: 2007Q3

REPORT INFORMATION
  Report Type: 
  Country: None (occurrence: None)
  Receive Date: 20070710
  Receipt Date: 20070628
  Transmission Date: 20080115
  Serious: Yes (Hospitalization, Other)
  Sender: FDA-Public Use
  Company Number: US-PFIZER INC-2007054427

PATIENT
  Sex: Female

DRUGS (14)
  1. CHANTIX [Suspect]
     Indication: SMOKING CESSATION THERAPY
     Route: 048
  2. CELEBREX [Suspect]
  3. LISINOPRIL [Concomitant]
     Route: 048
  4. METOPROLOL SUCCINATE [Concomitant]
     Route: 048
  5. SPIRONOLACTONE [Concomitant]
     Route: 048
  6. NEXIUM [Concomitant]
     Route: 048
  7. DIGITEK [Concomitant]
     Route: 048
  8. LASIX [Concomitant]
     Route: 048
  9. EFFEXOR [Concomitant]
     Route: 048
  10. MAGNESIUM SULFATE [Concomitant]
     Route: 048
  11. ASPIRIN [Concomitant]
     Route: 048
  12. MULTI-VITAMINS [Concomitant]
     Route: 048
  13. PROVENTIL INHALER [Concomitant]
     Route: 055
  14. OXYGEN [Concomitant]

REACTIONS (6)
  - DECREASED APPETITE [None]
  - GASTRITIS [None]
  - INTESTINAL OBSTRUCTION [None]
  - NAUSEA [None]
  - VOMITING [None]
  - WEIGHT DECREASED [None]
